FAERS Safety Report 11804053 (Version 1)
Quarter: 2015Q4

REPORT INFORMATION
  Report Type: Spontaneous
  Country: US (occurrence: US)
  Receive Date: 20151204
  Receipt Date: 20151204
  Transmission Date: 20160305
  Serious: Yes (Death)
  Sender: FDA-Public Use
  Company Number: US-BAYER-2015-476199

PATIENT
  Age: 79 Year
  Sex: Male
  Weight: 81.63 kg

DRUGS (2)
  1. ALKA-SELTZER ORIGINAL [Suspect]
     Active Substance: ANHYDROUS CITRIC ACID\ASPIRIN\SODIUM BICARBONATE
     Indication: INSOMNIA
  2. ALKA-SELTZER ORIGINAL [Suspect]
     Active Substance: ANHYDROUS CITRIC ACID\ASPIRIN\SODIUM BICARBONATE
     Indication: PAIN
     Dosage: UNK
     Dates: start: 2006, end: 2011

REACTIONS (2)
  - Product use issue [None]
  - Dementia Alzheimer^s type [Fatal]

NARRATIVE: CASE EVENT DATE: 2006
